FAERS Safety Report 5622886-5 (Version None)
Quarter: 2008Q1

REPORT INFORMATION
  Report Type: 
  Country: None (occurrence: None)
  Receive Date: 20080207
  Receipt Date: 20080207
  Transmission Date: 20080703
  Serious: No
  Sender: FDA-Public Use
  Company Number: None

PATIENT
  Age: 37 Year
  Sex: Male

DRUGS (4)
  1. BACTRIM DS [Suspect]
     Dates: start: 20060421, end: 20060428
  2. ATARAX [Concomitant]
  3. BACTROBAN ONITMENT [Concomitant]
  4. PEPCID [Concomitant]

REACTIONS (4)
  - ANOREXIA [None]
  - FATIGUE [None]
  - JAUNDICE [None]
  - LIVER INJURY [None]
